FAERS Safety Report 7744594-7 (Version None)
Quarter: 2011Q3

REPORT INFORMATION
  Report Type: 
  Country: None (occurrence: None)
  Receive Date: 20110912
  Receipt Date: 20110831
  Transmission Date: 20111222
  Serious: No
  Sender: FDA-Public Use
  Company Number: US-ROXANE LABORATORIES, INC.-2011-RO-01238RO

PATIENT
  Age: 20 Year
  Sex: Female

DRUGS (1)
  1. LEVETIRACETAM [Suspect]
     Indication: CONVULSION
     Dosage: 5 ML
     Dates: start: 20110830

REACTIONS (2)
  - NAUSEA [None]
  - ABDOMINAL PAIN UPPER [None]
